FAERS Safety Report 19005478 (Version 2)
Quarter: 2021Q1

REPORT INFORMATION
  Report Type: Report from Study
  Country: US (occurrence: US)
  Receive Date: 20210313
  Receipt Date: 20210320
  Transmission Date: 20210420
  Serious: Yes (Hospitalization)
  Sender: FDA-Public Use
  Company Number: NVSC2021US056920

PATIENT
  Age: 79 Year
  Sex: Male
  Weight: 64.9 kg

DRUGS (117)
  1. TOBRAMYCIN. [Suspect]
     Active Substance: TOBRAMYCIN
     Indication: PSEUDOMONAS INFECTION
     Dosage: 112 MG, BID
     Route: 065
     Dates: start: 20170518, end: 20170605
  2. CAYSTON [Suspect]
     Active Substance: AZTREONAM
     Dosage: 75 MG, TID
     Route: 065
     Dates: start: 20161201, end: 20161228
  3. CAYSTON [Suspect]
     Active Substance: AZTREONAM
     Dosage: 75 MG, TID
     Route: 065
     Dates: start: 20170414, end: 20170430
  4. CAYSTON [Suspect]
     Active Substance: AZTREONAM
     Dosage: 75 MG, TID
     Route: 065
     Dates: start: 20190623, end: 20190721
  5. CAYSTON [Suspect]
     Active Substance: AZTREONAM
     Dosage: 75 MG, TID
     Route: 065
     Dates: start: 20200202, end: 20200301
  6. CAYSTON [Suspect]
     Active Substance: AZTREONAM
     Dosage: 75 MG, TID
     Route: 065
     Dates: start: 20200524, end: 20200621
  7. CAYSTON [Suspect]
     Active Substance: AZTREONAM
     Dosage: 75 MG, TID
     Route: 065
     Dates: start: 20200913, end: 20201011
  8. CAYSTON [Suspect]
     Active Substance: AZTREONAM
     Dosage: 75 MG, TID
     Route: 065
     Dates: start: 20210301
  9. PREDNISONE. [Concomitant]
     Active Substance: PREDNISONE
     Dosage: 10 MG, QD
     Route: 048
     Dates: start: 20201221, end: 20201222
  10. PREDNISONE. [Concomitant]
     Active Substance: PREDNISONE
     Dosage: 30 MG, QD
     Route: 048
     Dates: start: 20210121, end: 20210123
  11. POTASSIUM CHLORIDE. [Concomitant]
     Active Substance: POTASSIUM CHLORIDE
     Indication: HYPOKALAEMIA
     Dosage: 40 MEQ, QD
     Route: 048
     Dates: start: 20201119, end: 20201120
  12. POTASSIUM CHLORIDE. [Concomitant]
     Active Substance: POTASSIUM CHLORIDE
     Dosage: 20 MEQ, QD
     Route: 048
     Dates: start: 20210122
  13. LEVAQUIN [Concomitant]
     Active Substance: LEVOFLOXACIN
     Indication: DYSPNOEA
     Dosage: 750 MG, QD
     Route: 048
     Dates: start: 20210107, end: 20210128
  14. IODIXANOL. [Concomitant]
     Active Substance: IODIXANOL
     Indication: ANGIOGRAM
     Dosage: 30 ML, QD
     Route: 042
     Dates: start: 20201208, end: 20201209
  15. HEPARIN [Concomitant]
     Active Substance: HEPARIN SODIUM
     Indication: ATRIAL FIBRILLATION
     Dosage: 2500 IU, QD
     Route: 042
     Dates: start: 20201208, end: 20201208
  16. VITAMIIN C [Concomitant]
     Active Substance: ASCORBIC ACID
     Indication: COVID-19 TREATMENT
     Dosage: 1000 MG, QD
     Route: 048
  17. GLUCAGON. [Concomitant]
     Active Substance: GLUCAGON
     Indication: PRODUCT USED FOR UNKNOWN INDICATION
     Dosage: 1 MG, PRN
     Route: 030
  18. SENOKOT [Concomitant]
     Active Substance: SENNOSIDES
     Indication: CONSTIPATION
     Dosage: 10 ML, BID
     Route: 048
     Dates: start: 20201030, end: 20201112
  19. MIRALAX [Concomitant]
     Active Substance: POLYETHYLENE GLYCOL 3350
     Indication: PRODUCT USED FOR UNKNOWN INDICATION
     Dosage: 1 DF, Q6H, PRN, SACHET
     Route: 048
     Dates: start: 20200326, end: 20201112
  20. HYDROCHLOROTHIAZIDE. [Concomitant]
     Active Substance: HYDROCHLOROTHIAZIDE
     Indication: HYPERTENSION
     Dosage: 25 MG, QD
     Route: 048
     Dates: start: 20190510, end: 20190614
  21. CAYSTON [Suspect]
     Active Substance: AZTREONAM
     Dosage: 75 MG, TID
     Route: 065
     Dates: start: 20180722, end: 20180819
  22. CAYSTON [Suspect]
     Active Substance: AZTREONAM
     Dosage: 75 MG, TID
     Route: 065
     Dates: start: 20190818, end: 20190915
  23. COLISTIN [Suspect]
     Active Substance: COLISTIN
     Indication: PRODUCT USED FOR UNKNOWN INDICATION
     Dosage: 150 MG, BID
     Route: 065
     Dates: start: 20170101, end: 20170128
  24. PREDNISONE. [Concomitant]
     Active Substance: PREDNISONE
     Dosage: 40 MG, QD
     Route: 048
     Dates: start: 20201111, end: 20201112
  25. PREDNISONE. [Concomitant]
     Active Substance: PREDNISONE
     Dosage: 10 MG, QD
     Route: 048
     Dates: start: 20210117, end: 20210121
  26. PREDNISONE. [Concomitant]
     Active Substance: PREDNISONE
     Dosage: 20 MG, QD
     Route: 048
     Dates: start: 20210124, end: 20210126
  27. METHYLPREDNISOLONE. [Concomitant]
     Active Substance: METHYLPREDNISOLONE
     Indication: COVID-19 TREATMENT
     Dosage: 40 MG, TID
     Route: 042
  28. TAMIFLU [Concomitant]
     Active Substance: OSELTAMIVIR PHOSPHATE
     Indication: INFLUENZA LIKE ILLNESS
     Dosage: 75 MG, BID
     Route: 048
     Dates: start: 20190125, end: 20190131
  29. CAYSTON [Suspect]
     Active Substance: AZTREONAM
     Dosage: 75 MG, TID,
     Route: 065
     Dates: start: 20161003, end: 20161031
  30. CAYSTON [Suspect]
     Active Substance: AZTREONAM
     Dosage: 75 MG, TID
     Route: 065
     Dates: start: 20170606, end: 20170622
  31. CAYSTON [Suspect]
     Active Substance: AZTREONAM
     Dosage: 75 MG, TID
     Route: 065
     Dates: start: 20171001, end: 20171029
  32. CAYSTON [Suspect]
     Active Substance: AZTREONAM
     Dosage: 75 MG, TID
     Route: 065
     Dates: start: 20190303, end: 20190331
  33. CAYSTON [Suspect]
     Active Substance: AZTREONAM
     Dosage: 75 MG, TID
     Route: 065
     Dates: start: 20191013, end: 20191110
  34. CAYSTON [Suspect]
     Active Substance: AZTREONAM
     Dosage: 75 MG, TID
     Route: 065
     Dates: start: 20210103, end: 20210131
  35. PREDNISONE. [Concomitant]
     Active Substance: PREDNISONE
     Dosage: 20 MG, QD
     Route: 048
     Dates: start: 20201101, end: 20201105
  36. LEVAQUIN [Concomitant]
     Active Substance: LEVOFLOXACIN
     Indication: COVID-19 PNEUMONIA
     Dosage: 750 MG, QD
     Route: 048
     Dates: start: 20201025, end: 20201028
  37. LEVAQUIN [Concomitant]
     Active Substance: LEVOFLOXACIN
     Indication: COUGH
     Dosage: 750 MG, QD
     Route: 042
     Dates: start: 20201031, end: 20201112
  38. FUROSEMIDE. [Concomitant]
     Active Substance: FUROSEMIDE
     Indication: OEDEMA PERIPHERAL
     Dosage: 60 MG, QD
     Route: 048
     Dates: start: 20201201, end: 20201201
  39. FUROSEMIDE. [Concomitant]
     Active Substance: FUROSEMIDE
     Dosage: 40 MG, QD
     Route: 048
     Dates: start: 20210119, end: 20210127
  40. LIDOCAINE. [Concomitant]
     Active Substance: LIDOCAINE
     Indication: MAINTENANCE OF ANAESTHESIA
     Dosage: 0.1 ML, PRN
     Route: 058
     Dates: start: 20201030, end: 20201030
  41. MIDAZOLAM. [Concomitant]
     Active Substance: MIDAZOLAM
     Indication: SEDATION
     Dosage: UNK 2 MG/ 2 ML
     Route: 042
     Dates: start: 20201208, end: 20201208
  42. PRECEDEX [Concomitant]
     Active Substance: DEXMEDETOMIDINE HYDROCHLORIDE
     Indication: PRODUCT USED FOR UNKNOWN INDICATION
     Dosage: UNK0.05 MCQ KG/HR
     Route: 042
     Dates: start: 20201101, end: 20201112
  43. MAGNESIUM HYDROXIDE. [Concomitant]
     Active Substance: MAGNESIUM HYDROXIDE
     Indication: CONSTIPATION
     Dosage: 30 ML, TID
     Route: 048
     Dates: start: 20201102, end: 20201112
  44. ZERBAXA [Concomitant]
     Active Substance: CEFTOLOZANE SULFATE\TAZOBACTAM SODIUM
     Indication: COVID-19 PNEUMONIA
     Dosage: 3 G, TID
     Route: 042
     Dates: start: 20201031, end: 20201112
  45. DULCOLAX NOS [Concomitant]
     Active Substance: BISACODYL OR DOCUSATE SODIUM
     Dosage: 10 MG, QD
     Route: 054
     Dates: start: 20201030, end: 20201112
  46. HYDROCODONE/ACETAMINOPHEN [Concomitant]
     Active Substance: ACETAMINOPHEN\HYDROCODONE
     Indication: PRODUCT USED FOR UNKNOWN INDICATION
     Dosage: UNK, Q6H, 5?325 MG PRN
     Route: 048
     Dates: start: 20200326, end: 20200420
  47. CAYSTON [Suspect]
     Active Substance: AZTREONAM
     Dosage: 75 MG, TID
     Route: 065
     Dates: start: 20181111, end: 20181209
  48. CAYSTON [Suspect]
     Active Substance: AZTREONAM
     Dosage: 75 MG, TID
     Route: 065
     Dates: start: 20190106, end: 20190203
  49. LISINOPRIL. [Concomitant]
     Active Substance: LISINOPRIL
     Indication: HEPATIC FUNCTION ABNORMAL
     Dosage: 5 MG, QD
     Route: 048
     Dates: start: 20201113, end: 20201120
  50. PHENYLEPHRINE [Concomitant]
     Active Substance: PHENYLEPHRINE HYDROCHLORIDE
     Indication: PRODUCT USED FOR UNKNOWN INDICATION
     Dosage: 100 UG
     Route: 065
     Dates: start: 20210304
  51. LEVAQUIN [Concomitant]
     Active Substance: LEVOFLOXACIN
     Indication: CYSTIC FIBROSIS LUNG
     Dosage: 750 MG, QD
     Route: 048
     Dates: start: 20200831, end: 20200914
  52. TYLENOL [Concomitant]
     Active Substance: ACETAMINOPHEN
     Indication: PAIN
     Dosage: 1000 MG, QID
     Route: 048
     Dates: start: 20200326
  53. FLUTICASONE FUROATE W/VILANTEROL [Concomitant]
     Active Substance: FLUTICASONE FUROATE\VILANTEROL TRIFENATATE
     Indication: LUNG DISORDER
     Dosage: UNK, 1 PUFF
     Route: 065
     Dates: start: 20210128
  54. FLUTICASONE FUROATE [Concomitant]
     Active Substance: FLUTICASONE FUROATE
     Indication: CYSTIC FIBROSIS LUNG
     Dosage: 200 UG, QD
     Route: 065
  55. SODIUM CHLORIDE. [Concomitant]
     Active Substance: SODIUM CHLORIDE
     Indication: PRODUCT USED FOR UNKNOWN INDICATION
     Dosage: UNK 75 ML/ HR
     Route: 042
  56. ENOXAPARIN [Concomitant]
     Active Substance: ENOXAPARIN
     Indication: PROPHYLAXIS
     Dosage: 40 MG, BID
     Route: 058
     Dates: start: 20201031, end: 20201112
  57. LORAZEPAM. [Concomitant]
     Active Substance: LORAZEPAM
     Indication: ANXIETY
     Dosage: UNK, Q4H, 1?2 MG
     Route: 042
     Dates: start: 20201101, end: 20201112
  58. DULCOLAX NOS [Concomitant]
     Active Substance: BISACODYL OR DOCUSATE SODIUM
     Indication: CONSTIPATION
     Dosage: 10 MG, CUMULATIVE DOSE 140
     Route: 048
     Dates: start: 20200826, end: 20200826
  59. NIFEDIPINE. [Concomitant]
     Active Substance: NIFEDIPINE
     Indication: HYPERTENSION
     Dosage: 60 MG, QD
     Route: 048
     Dates: start: 20190422, end: 20190510
  60. AUGMENTIN [Concomitant]
     Active Substance: AMOXICILLIN\CLAVULANATE POTASSIUM
     Indication: BRONCHIECTASIS
     Dosage: 875?125 MG
     Route: 048
     Dates: start: 20190404, end: 20190413
  61. LOSARTAN. [Concomitant]
     Active Substance: LOSARTAN
     Indication: HYPERTENSION
     Dosage: 100 MG, QD
     Route: 048
     Dates: start: 20181109, end: 20181112
  62. CAYSTON [Suspect]
     Active Substance: AZTREONAM
     Dosage: 75 MG, TID
     Route: 065
     Dates: start: 20170301, end: 20170329
  63. CAYSTON [Suspect]
     Active Substance: AZTREONAM
     Dosage: 75 MG, TID
     Route: 065
     Dates: start: 20180916, end: 20181014
  64. CAYSTON [Suspect]
     Active Substance: AZTREONAM
     Dosage: 75 MG, TID
     Route: 065
     Dates: start: 20190428, end: 20190524
  65. COLISTIN [Suspect]
     Active Substance: COLISTIN
     Dosage: 150 MG, BID
     Route: 065
     Dates: start: 20170128, end: 20170215
  66. PREDNISONE. [Concomitant]
     Active Substance: PREDNISONE
     Indication: CYSTIC FIBROSIS LUNG
     Dosage: 30 MG, QD
     Route: 048
     Dates: start: 20200831, end: 20200903
  67. PREDNISONE. [Concomitant]
     Active Substance: PREDNISONE
     Indication: WHEEZING
     Dosage: 10 MG, QID
     Route: 048
     Dates: start: 20201017, end: 20201120
  68. POTASSIUM CHLORIDE. [Concomitant]
     Active Substance: POTASSIUM CHLORIDE
     Indication: GENERALISED OEDEMA
     Dosage: 20 MEQ, QD
     Route: 048
     Dates: start: 20201123, end: 20201208
  69. NITROGLYCERIN. [Concomitant]
     Active Substance: NITROGLYCERIN
     Indication: ATRIAL FIBRILLATION
     Dosage: 100 UG, QD
     Route: 013
     Dates: start: 20201208, end: 20201208
  70. FENTANYL. [Concomitant]
     Active Substance: FENTANYL
     Indication: SEDATION
     Dosage: 50 UG, QD
     Route: 042
     Dates: start: 20201030, end: 20201112
  71. AMIODARONE [Concomitant]
     Active Substance: AMIODARONE
     Dosage: 200 MG, QD
     Route: 048
     Dates: start: 20201113, end: 20201221
  72. PERIDEX [Concomitant]
     Active Substance: CHLORHEXIDINE GLUCONATE
     Indication: PRODUCT USED FOR UNKNOWN INDICATION
     Dosage: 15 ML 0.12 PERCENT SOLUTION
     Route: 048
     Dates: start: 20201030, end: 20201112
  73. CEFTAZIDIME. [Concomitant]
     Active Substance: CEFTAZIDIME
     Indication: INFECTIVE PULMONARY EXACERBATION OF CYSTIC FIBROSIS
     Dosage: UNK
     Route: 065
  74. CARDIZEM [Concomitant]
     Active Substance: DILTIAZEM HYDROCHLORIDE
     Indication: HYPERTENSION
     Dosage: 240 MG, QD
     Route: 048
     Dates: start: 20190510, end: 20201112
  75. CAYSTON [Suspect]
     Active Substance: AZTREONAM
     Dosage: 75 MG, TID
     Route: 065
     Dates: start: 20180527, end: 20180624
  76. CAYSTON [Suspect]
     Active Substance: AZTREONAM
     Dosage: 75 MG, TID
     Route: 065
     Dates: start: 20200329, end: 20200424
  77. CAYSTON [Suspect]
     Active Substance: AZTREONAM
     Dosage: 75 MG, TID
     Route: 065
     Dates: start: 20200719, end: 20200816
  78. PREDNISONE. [Concomitant]
     Active Substance: PREDNISONE
     Indication: DYSPNOEA
     Dosage: 10 MG, QD
     Route: 048
     Dates: start: 20200908, end: 20200911
  79. LISINOPRIL. [Concomitant]
     Active Substance: LISINOPRIL
     Dosage: 2.5 MG, BID
     Route: 048
     Dates: start: 20210203, end: 20210219
  80. FUROSEMIDE. [Concomitant]
     Active Substance: FUROSEMIDE
     Indication: GENERALISED OEDEMA
     Dosage: 40 MG, BID
     Route: 048
     Dates: start: 20201201, end: 20201204
  81. FUROSEMIDE. [Concomitant]
     Active Substance: FUROSEMIDE
     Dosage: 20 MEQ, QD
     Route: 048
     Dates: start: 20210115, end: 20210119
  82. VERAPAMIL [Concomitant]
     Active Substance: VERAPAMIL HYDROCHLORIDE
     Indication: ATRIAL FIBRILLATION
     Dosage: 2.5 MG, QD
     Route: 013
     Dates: start: 20201208, end: 20201208
  83. METOPROLOL TARTRAS [Concomitant]
     Active Substance: METOPROLOL TARTRATE
     Indication: ATRIAL FIBRILLATION
     Dosage: 12.5 MG, BID
     Route: 048
     Dates: start: 20201112, end: 20210129
  84. LANTUS [Concomitant]
     Active Substance: INSULIN GLARGINE
     Indication: PRODUCT USED FOR UNKNOWN INDICATION
     Dosage: 40 IU, QD
     Route: 058
     Dates: start: 20201102, end: 20201111
  85. MELATONIN [Concomitant]
     Active Substance: MELATONIN
     Indication: INSOMNIA
     Dosage: 3 MG, QD
     Route: 048
  86. AMLODIPINE [Concomitant]
     Active Substance: AMLODIPINE BESYLATE
     Indication: HYPERTENSION
     Dosage: 5 MG, QD
     Route: 048
     Dates: start: 20181120, end: 20190404
  87. ZOSYN [Concomitant]
     Active Substance: PIPERACILLIN SODIUM\TAZOBACTAM SODIUM
     Indication: INFECTIVE PULMONARY EXACERBATION OF CYSTIC FIBROSIS
     Dosage: 4.5 G, TID
     Route: 042
     Dates: start: 20181115, end: 20181129
  88. CAYSTON [Suspect]
     Active Substance: AZTREONAM
     Indication: PRODUCT USED FOR UNKNOWN INDICATION
     Dosage: 75 MG, TID, CUMULATIVE DOSE 62325
     Route: 065
     Dates: start: 20160825, end: 20160905
  89. CAYSTON [Suspect]
     Active Substance: AZTREONAM
     Dosage: 75 MG, TID
     Route: 065
     Dates: start: 20171201, end: 20171229
  90. CAYSTON [Suspect]
     Active Substance: AZTREONAM
     Dosage: 75 MG, TID
     Route: 065
     Dates: start: 20180201, end: 20180301
  91. CAYSTON [Suspect]
     Active Substance: AZTREONAM
     Dosage: 75 MG, TID
     Route: 065
     Dates: start: 20180401, end: 20180429
  92. CAYSTON [Suspect]
     Active Substance: AZTREONAM
     Dosage: 75 MG, TID
     Route: 065
     Dates: start: 20191208, end: 20200105
  93. CAYSTON [Suspect]
     Active Substance: AZTREONAM
     Dosage: 75 MG
     Route: 065
     Dates: start: 20201109, end: 20201204
  94. COLISTIN [Suspect]
     Active Substance: COLISTIN
     Dosage: 150 MG, BID
     Route: 065
     Dates: start: 20170401, end: 20170413
  95. PREDNISONE. [Concomitant]
     Active Substance: PREDNISONE
     Indication: COUGH
     Dosage: 20 MG, QD
     Route: 048
     Dates: start: 20200904, end: 20200907
  96. PREDNISONE. [Concomitant]
     Active Substance: PREDNISONE
     Dosage: 20 MG, QD
     Route: 048
     Dates: start: 20201214, end: 20201221
  97. PREDNISONE. [Concomitant]
     Active Substance: PREDNISONE
     Dosage: 30 MG, QD
     Route: 048
     Dates: start: 20210107, end: 20210111
  98. LISINOPRIL. [Concomitant]
     Active Substance: LISINOPRIL
     Dosage: 5 MG, BID
     Route: 048
     Dates: start: 20210219
  99. LIDOCAINE. [Concomitant]
     Active Substance: LIDOCAINE
     Dosage: 2 MG, QD
     Route: 058
     Dates: start: 20201208, end: 20201208
  100. FENTANYL. [Concomitant]
     Active Substance: FENTANYL
     Dosage: 50 UG, QD, CUMULATIVE DOSE 750
     Route: 065
     Dates: start: 20201208, end: 20201208
  101. ACETAMINOPHEN. [Concomitant]
     Active Substance: ACETAMINOPHEN
     Indication: PYREXIA
     Dosage: UNK
     Route: 065
  102. VITAMIN D3 [Concomitant]
     Active Substance: CHOLECALCIFEROL
     Indication: COVID-19 TREATMENT
     Dosage: 25 UG, QD
     Route: 048
  103. ZOFRAN [Concomitant]
     Active Substance: ONDANSETRON HYDROCHLORIDE
     Dosage: 4 MG, QID, PRN
     Route: 048
     Dates: start: 20201030, end: 20201112
  104. ALBUTEROL. [Concomitant]
     Active Substance: ALBUTEROL
     Indication: PRODUCT USED FOR UNKNOWN INDICATION
     Dosage: 108 UG, Q4H, PRN
     Route: 065
     Dates: start: 20171019
  105. AMLODIPINE [Concomitant]
     Active Substance: AMLODIPINE BESYLATE
     Dosage: 10 MG, QD
     Route: 048
     Dates: start: 20190404, end: 20190422
  106. TOBRAMYCIN. [Suspect]
     Active Substance: TOBRAMYCIN
     Indication: CYSTIC FIBROSIS
     Dosage: 112 MG, BID
     Route: 065
     Dates: start: 20170501, end: 20170507
  107. CAYSTON [Suspect]
     Active Substance: AZTREONAM
     Dosage: 75 MG, TID
     Route: 065
     Dates: start: 20170801, end: 20170829
  108. PREDNISONE. [Concomitant]
     Active Substance: PREDNISONE
     Indication: COVID-19
     Dosage: 30 MG, QD
     Route: 048
     Dates: start: 20201027, end: 20201031
  109. PREDNISONE. [Concomitant]
     Active Substance: PREDNISONE
     Dosage: 20 MG, QD
     Route: 048
     Dates: start: 20210112, end: 20210116
  110. FUROSEMIDE. [Concomitant]
     Active Substance: FUROSEMIDE
     Indication: CARDIAC FAILURE
     Dosage: 40 MG, QD
     Route: 048
     Dates: start: 20201119, end: 20201201
  111. METOPROLOL SUCCINATE. [Concomitant]
     Active Substance: METOPROLOL SUCCINATE
     Indication: CARDIAC FAILURE
     Dosage: 25 MG, QD
     Route: 048
     Dates: start: 20210129
  112. AMIODARONE [Concomitant]
     Active Substance: AMIODARONE
     Indication: ATRIAL FIBRILLATION
     Dosage: 400 MG, QD
     Route: 048
     Dates: start: 20201103, end: 20201112
  113. APIXABAN [Concomitant]
     Active Substance: APIXABAN
     Indication: ATRIAL FIBRILLATION
     Dosage: 5 MG, BID
     Route: 048
     Dates: start: 20201112, end: 20210213
  114. ASPIRIN. [Concomitant]
     Active Substance: ASPIRIN
     Indication: PRODUCT USED FOR UNKNOWN INDICATION
     Dosage: 81 MG, QD
     Route: 048
  115. COLACE [Concomitant]
     Active Substance: DOCUSATE SODIUM
     Indication: CONSTIPATION
     Dosage: 100 MG, BID, PRN
     Route: 048
     Dates: start: 20201030, end: 20201112
  116. ZOFRAN [Concomitant]
     Active Substance: ONDANSETRON HYDROCHLORIDE
     Indication: NAUSEA
     Dosage: 4 MG, QD
     Route: 048
     Dates: start: 20200826, end: 20200827
  117. OXY.IR [Concomitant]
     Active Substance: OXYCODONE HYDROCHLORIDE
     Indication: PRODUCT USED FOR UNKNOWN INDICATION
     Dosage: 5 MG, Q6H, PRN
     Route: 048
     Dates: start: 20200326, end: 20200420

REACTIONS (1)
  - Ventricular pre-excitation [Unknown]

NARRATIVE: CASE EVENT DATE: 20210304
